FAERS Safety Report 19138473 (Version 1)
Quarter: 2021Q2

REPORT INFORMATION
  Report Type: Spontaneous
  Country: IN (occurrence: IN)
  Receive Date: 20210415
  Receipt Date: 20210415
  Transmission Date: 20210717
  Serious: Yes (Other)
  Sender: FDA-Public Use
  Company Number: IN-SUN PHARMACEUTICAL INDUSTRIES LTD-2021R1-291428

PATIENT
  Age: 53 Year
  Sex: Female

DRUGS (3)
  1. AZITHROMYCIN ANHYDROUS. [Suspect]
     Active Substance: AZITHROMYCIN ANHYDROUS
     Indication: INTERSTITIAL LUNG DISEASE
     Dosage: UNK
     Route: 065
  2. AMPICILLIN [Suspect]
     Active Substance: AMPICILLIN
     Indication: INTERSTITIAL LUNG DISEASE
     Dosage: UNK
     Route: 065
  3. VITAMIN C [Concomitant]
     Active Substance: ASCORBIC ACID
     Indication: INTERSTITIAL LUNG DISEASE
     Dosage: 500 MILLIGRAM, TID
     Route: 065

REACTIONS (1)
  - Renal impairment [Recovering/Resolving]
